FAERS Safety Report 6245088-0 (Version None)
Quarter: 2009Q2

REPORT INFORMATION
  Report Type: 
  Country: None (occurrence: None)
  Receive Date: 20090625
  Receipt Date: 20090615
  Transmission Date: 20091009
  Serious: Yes (Other)
  Sender: FDA-Public Use
  Company Number: US-ROCHE-639408

PATIENT
  Age: 28 Year
  Sex: Female

DRUGS (10)
  1. MYCOPHENOLATE MOFETIL [Suspect]
     Indication: PROPHYLAXIS AGAINST TRANSPLANT REJECTION
     Route: 065
  2. MYCOPHENOLATE MOFETIL [Suspect]
     Dosage: INCREASED DOSING.
     Route: 065
  3. RITUXIMAB [Suspect]
     Indication: THERAPEUTIC PROCEDURE
     Route: 065
  4. RATG [Suspect]
     Indication: PROPHYLAXIS AGAINST TRANSPLANT REJECTION
     Dosage: IN FOUR DOSES.
     Route: 065
  5. RATG [Suspect]
     Dosage: IN FOUR DOSES.
     Route: 065
  6. TACROLIMUS [Suspect]
     Indication: PROPHYLAXIS AGAINST TRANSPLANT REJECTION
     Dosage: INITIAL TARGET LEVEL 10 NG/ML.
     Route: 065
  7. PREDNISONE [Suspect]
     Indication: PROPHYLAXIS AGAINST TRANSPLANT REJECTION
     Route: 065
  8. PREDNISONE [Suspect]
     Dosage: TAPERED TO 5 MG/DAY BY POST TRANSPLANT DAY 7.
     Route: 065
  9. BORTEZOMIB [Suspect]
     Indication: PROPHYLAXIS AGAINST TRANSPLANT REJECTION
     Dosage: DOSAGE: 1.3 MG/M2 X4 DOSES. PTD 96.
     Route: 065
  10. BORTEZOMIB [Suspect]
     Dosage: SECOND COURSE WAS INITIATED ON PTD 269.
     Route: 065

REACTIONS (5)
  - ATROPHY [None]
  - CHRONIC ALLOGRAFT NEPHROPATHY [None]
  - GLOMERULONEPHRITIS ACUTE [None]
  - INJURY [None]
  - TRANSPLANT REJECTION [None]
